FAERS Safety Report 9601595 (Version 2)
Quarter: 2014Q1

REPORT INFORMATION
  Report Type: Report from Study
  Country: US (occurrence: US)
  Receive Date: 20131007
  Receipt Date: 20140116
  Transmission Date: 20141002
  Serious: Yes (Other)
  Sender: FDA-Public Use
  Company Number: US-ROCHE-1284595

PATIENT
  Sex: 0

DRUGS (1)
  1. ALTEPLASE [Suspect]
     Indication: INTRAVENTRICULAR HAEMORRHAGE
     Dosage: ROUTE: INTRAVENTRICULAR
     Route: 050

REACTIONS (1)
  - Meningitis aseptic [Unknown]
